FAERS Safety Report 25154842 (Version 1)
Quarter: 2025Q2

REPORT INFORMATION
  Report Type: Spontaneous
  Country: US (occurrence: US)
  Receive Date: 20250403
  Receipt Date: 20250403
  Transmission Date: 20250717
  Serious: No
  Sender: PFIZER
  Company Number: US-PFIZER INC-PV202500039388

PATIENT
  Age: 39 Year
  Sex: Female

DRUGS (1)
  1. NURTEC ODT [Suspect]
     Active Substance: RIMEGEPANT SULFATE
     Route: 048
     Dates: start: 202503, end: 202503

REACTIONS (3)
  - Pharyngeal swelling [Unknown]
  - Throat irritation [Unknown]
  - Dysphagia [Unknown]

NARRATIVE: CASE EVENT DATE: 20250301
